FAERS Safety Report 20616210 (Version 1)
Quarter: 2022Q1

REPORT INFORMATION
  Report Type: Report from Study
  Country: US (occurrence: US)
  Receive Date: 20220321
  Receipt Date: 20220321
  Transmission Date: 20220423
  Serious: Yes (Other)
  Sender: FDA-Public Use
  Company Number: US-NOVARTISTESTPH-NVSC2022US058516

PATIENT
  Sex: Male

DRUGS (3)
  1. KESIMPTA [Suspect]
     Active Substance: OFATUMUMAB
     Indication: Relapsing-remitting multiple sclerosis
     Dosage: 20 MG
     Route: 058
  2. TIZANIDINE HYDROCHLORIDE [Concomitant]
     Active Substance: TIZANIDINE HYDROCHLORIDE
     Indication: Product used for unknown indication
     Dosage: UNK
     Route: 065
  3. PENICILLIN G SODIUM [Concomitant]
     Active Substance: PENICILLIN G SODIUM
     Indication: Drug hypersensitivity
     Dosage: UNK
     Route: 065

REACTIONS (8)
  - Secondary progressive multiple sclerosis [Unknown]
  - Mobility decreased [Unknown]
  - Feeling abnormal [Unknown]
  - Gait inability [Unknown]
  - Dyspepsia [Unknown]
  - Infrequent bowel movements [Unknown]
  - Furuncle [Unknown]
  - Drug ineffective [Unknown]
